FAERS Safety Report 5409078-X (Version None)
Quarter: 2007Q3

REPORT INFORMATION
  Report Type: 
  Country: None (occurrence: None)
  Receive Date: 20070808
  Receipt Date: 20070807
  Transmission Date: 20080115
  Serious: Yes (Other)
  Sender: FDA-Public Use
  Company Number: JP-MERCK-0707USA02897

PATIENT
  Age: 26 Year
  Sex: Female

DRUGS (8)
  1. PEPCID [Suspect]
     Indication: NASOPHARYNGITIS
     Route: 048
  2. DEXTROMETHORPHAN [Concomitant]
     Indication: NASOPHARYNGITIS
     Route: 048
  3. HERBS (UNSPECIFIED) [Concomitant]
     Route: 048
  4. METOCLOPRAMIDE [Concomitant]
     Indication: NASOPHARYNGITIS
     Route: 048
  5. SENECA SNAKEROOT [Concomitant]
     Indication: NASOPHARYNGITIS
     Route: 048
  6. TRANEXAMIC ACID [Concomitant]
     Indication: NASOPHARYNGITIS
     Route: 048
  7. ACETAMINOPHEN [Concomitant]
     Indication: NASOPHARYNGITIS
     Route: 048
  8. CEFCAPENE PIVOXIL HYDROCHLORIDE [Concomitant]
     Indication: NASOPHARYNGITIS
     Route: 048

REACTIONS (5)
  - ABDOMINAL DISTENSION [None]
  - DISSEMINATED INTRAVASCULAR COAGULATION [None]
  - GASTROINTESTINAL OEDEMA [None]
  - HYPOGLYCAEMIA [None]
  - POST PROCEDURAL HAEMORRHAGE [None]
